FAERS Safety Report 18862036 (Version 1)
Quarter: 2021Q1

REPORT INFORMATION
  Report Type: Spontaneous
  Country: ES (occurrence: ES)
  Receive Date: 20210208
  Receipt Date: 20210208
  Transmission Date: 20210420
  Serious: Yes (Hospitalization, Other)
  Sender: FDA-Public Use
  Company Number: NVSC2021ES027790

PATIENT
  Age: 95 Year
  Sex: Female

DRUGS (1)
  1. HYDROXYCHLOROQUINE [Suspect]
     Active Substance: HYDROXYCHLOROQUINE
     Indication: COVID-19 PNEUMONIA
     Dosage: UNK(10 DAY COURSE)
     Route: 065

REACTIONS (3)
  - Product use in unapproved indication [Unknown]
  - Erythema multiforme [Recovering/Resolving]
  - COVID-19 [Recovering/Resolving]
